FAERS Safety Report 14499019 (Version 1)
Quarter: 2018Q1

REPORT INFORMATION
  Report Type: Report from Study
  Country: FR (occurrence: FR)
  Receive Date: 20180207
  Receipt Date: 20180207
  Transmission Date: 20180509
  Serious: Yes (Other)
  Sender: FDA-Public Use
  Company Number: FR-PFIZER INC-2018046945

PATIENT
  Age: 12 Year
  Sex: Female
  Weight: 56 kg

DRUGS (24)
  1. PREDNISONE. [Suspect]
     Active Substance: PREDNISONE
     Dosage: UNK
     Dates: start: 20170323, end: 20170410
  2. DAUNORUBICIN [Suspect]
     Active Substance: DAUNORUBICIN
     Indication: B PRECURSOR TYPE ACUTE LEUKAEMIA
     Dosage: 50 MG, UNK
     Route: 042
     Dates: start: 20170323, end: 20170323
  3. BACTRIM [Concomitant]
     Active Substance: SULFAMETHOXAZOLE\TRIMETHOPRIM
     Indication: INFECTION PROPHYLAXIS
     Dosage: 800 MG, 3X/DAY
     Route: 048
  4. ESOMEPRAZOLE [Concomitant]
     Active Substance: ESOMEPRAZOLE
     Indication: GASTROOESOPHAGEAL REFLUX DISEASE
     Dosage: 40 MG, 1X/DAY
     Route: 048
  5. VINCRISTINE SULFATE. [Suspect]
     Active Substance: VINCRISTINE SULFATE
     Dosage: 1 MG, UNK
     Route: 042
     Dates: start: 20170608, end: 20170608
  6. VINCRISTINE SULFATE. [Suspect]
     Active Substance: VINCRISTINE SULFATE
     Indication: B PRECURSOR TYPE ACUTE LEUKAEMIA
     Dosage: 2 MG, UNK
     Route: 042
     Dates: start: 20170323, end: 20170323
  7. METHOTREXATE. [Suspect]
     Active Substance: METHOTREXATE
     Indication: B PRECURSOR TYPE ACUTE LEUKAEMIA
     Dosage: 15 MG, UNK
     Route: 037
     Dates: start: 20170316, end: 20170316
  8. HYDROCORTISONE. [Suspect]
     Active Substance: HYDROCORTISONE
     Indication: B PRECURSOR TYPE ACUTE LEUKAEMIA
     Dosage: 15 MG, UNK
     Route: 037
     Dates: start: 20170328, end: 20170328
  9. HYDROCORTISONE. [Suspect]
     Active Substance: HYDROCORTISONE
     Dosage: 15 MG, UNK
     Route: 037
     Dates: start: 20170407, end: 20170407
  10. CYTARABINE. [Suspect]
     Active Substance: CYTARABINE
     Dosage: 60 MG, UNK
     Route: 037
  11. METHOTREXATE. [Suspect]
     Active Substance: METHOTREXATE
     Dosage: 15 MG, UNK
     Route: 037
     Dates: start: 20170328, end: 20170328
  12. DAUNORUBICIN [Suspect]
     Active Substance: DAUNORUBICIN
     Dosage: 50 MG, UNK
     Route: 042
     Dates: start: 20170330, end: 20170330
  13. ONCASPAR [Suspect]
     Active Substance: PEGASPARGASE
     Indication: B PRECURSOR TYPE ACUTE LEUKAEMIA
     Dosage: 2090 IU, UNK
     Route: 042
     Dates: start: 20170327, end: 20170327
  14. VINCRISTINE SULFATE. [Suspect]
     Active Substance: VINCRISTINE SULFATE
     Dosage: 1 MG, UNK
     Route: 042
     Dates: start: 20170602, end: 20170602
  15. METHOTREXATE. [Suspect]
     Active Substance: METHOTREXATE
     Dosage: 15 MG, UNK
     Route: 037
     Dates: start: 20170407, end: 20170407
  16. PREDNISONE. [Suspect]
     Active Substance: PREDNISONE
     Indication: B PRECURSOR TYPE ACUTE LEUKAEMIA
     Dosage: 100 MG, UNK
     Route: 048
     Dates: start: 20170316
  17. VINCRISTINE SULFATE. [Suspect]
     Active Substance: VINCRISTINE SULFATE
     Dosage: 2 MG, UNK
     Route: 042
     Dates: start: 20170406, end: 20170406
  18. VINCRISTINE SULFATE. [Suspect]
     Active Substance: VINCRISTINE SULFATE
     Dosage: 1 MG, UNK
     Route: 042
     Dates: start: 20170413, end: 20170413
  19. VINCRISTINE SULFATE. [Suspect]
     Active Substance: VINCRISTINE SULFATE
     Dosage: 2 MG, UNK
     Route: 042
     Dates: start: 20170330, end: 20170330
  20. CYCLOPHOSPHAMIDE. [Suspect]
     Active Substance: CYCLOPHOSPHAMIDE
     Indication: B PRECURSOR TYPE ACUTE LEUKAEMIA
     Dosage: 800 MG, UNK
     Route: 065
     Dates: start: 20170516, end: 20170516
  21. CYTARABINE. [Suspect]
     Active Substance: CYTARABINE
     Indication: B PRECURSOR TYPE ACUTE LEUKAEMIA
     Dosage: 30 MG, UNK
     Route: 037
     Dates: start: 20170328, end: 20170328
  22. CYTARABINE. [Suspect]
     Active Substance: CYTARABINE
     Dosage: 30 MG, UNK
     Route: 037
     Dates: start: 20170407, end: 20170407
  23. DAUNORUBICIN [Suspect]
     Active Substance: DAUNORUBICIN
     Dosage: 50 MG, UNK
     Route: 042
     Dates: start: 20170406, end: 20170406
  24. DAUNORUBICIN [Suspect]
     Active Substance: DAUNORUBICIN
     Dosage: 50 MG, UNK
     Route: 042
     Dates: start: 20170413, end: 20170413

REACTIONS (1)
  - Pancreatitis acute [Recovered/Resolved]

NARRATIVE: CASE EVENT DATE: 20170408
